FAERS Safety Report 18642534 (Version 1)
Quarter: 2020Q4

REPORT INFORMATION
  Report Type: Spontaneous
  Country: US (occurrence: US)
  Receive Date: 20201218
  Receipt Date: 20201218
  Transmission Date: 20210114
  Serious: Yes (Hospitalization)
  Sender: FDA-Public Use
  Company Number: None

PATIENT
  Age: 72 Year
  Sex: Female
  Weight: 81 kg

DRUGS (2)
  1. ALIMTA [Suspect]
     Active Substance: PEMETREXED DISODIUM
     Dates: end: 20201117
  2. CARBOPLATIN 530MG [Suspect]
     Active Substance: CARBOPLATIN

REACTIONS (3)
  - Neck pain [None]
  - Deep vein thrombosis [None]
  - Procedural pain [None]

NARRATIVE: CASE EVENT DATE: 20201127
